FAERS Safety Report 13525046 (Version 1)
Quarter: 2017Q2

REPORT INFORMATION
  Report Type: Spontaneous
  Country: US (occurrence: US)
  Receive Date: 20170508
  Receipt Date: 20170508
  Transmission Date: 20170830
  Serious: Yes (Other)
  Sender: FDA-Public Use
  Company Number: US-ROCHE-659817

PATIENT
  Sex: Male
  Weight: 97.7 kg

DRUGS (3)
  1. RANIBIZUMAB [Suspect]
     Active Substance: RANIBIZUMAB
     Dosage: 1 MG, SINGLE
     Route: 031
  2. BEVACIZUMAB [Suspect]
     Active Substance: BEVACIZUMAB
     Indication: AGE-RELATED MACULAR DEGENERATION
     Dosage: UNK
     Route: 031
     Dates: start: 200904, end: 200904
  3. RANIBIZUMAB [Suspect]
     Active Substance: RANIBIZUMAB
     Indication: AGE-RELATED MACULAR DEGENERATION
     Dosage: 0.5 MG, 1/MONTH
     Route: 050

REACTIONS (5)
  - Drug ineffective [Unknown]
  - Neovascular age-related macular degeneration [Not Recovered/Not Resolved]
  - Vitreous floaters [Unknown]
  - Ocular hyperaemia [Unknown]
  - Retinal haemorrhage [Not Recovered/Not Resolved]
